FAERS Safety Report 13029183 (Version 3)
Quarter: 2017Q1

REPORT INFORMATION
  Report Type: Report from Study
  Country: US (occurrence: US)
  Receive Date: 20161215
  Receipt Date: 20170228
  Transmission Date: 20170428
  Serious: Yes (Hospitalization, Other)
  Sender: FDA-Public Use
  Company Number: US-009507513-1611USA013289

PATIENT
  Age: 77 Year
  Sex: Female
  Weight: 63 kg

DRUGS (1)
  1. KEYTRUDA [Suspect]
     Active Substance: PEMBROLIZUMAB
     Indication: OVARIAN CANCER
     Dosage: 2 MG/KG, Q 21 D
     Route: 042
     Dates: start: 20160812, end: 20161006

REACTIONS (6)
  - Influenza [Recovered/Resolved]
  - Malignant neoplasm progression [Unknown]
  - Dyspnoea [Recovered/Resolved]
  - Effusion [Recovered/Resolved]
  - Pneumonitis [Unknown]
  - Product use issue [Unknown]

NARRATIVE: CASE EVENT DATE: 2016
